FAERS Safety Report 21866692 (Version 5)
Quarter: 2023Q2

REPORT INFORMATION
  Report Type: Report from Study
  Country: US (occurrence: US)
  Receive Date: 20230116
  Receipt Date: 20230614
  Transmission Date: 20230721
  Serious: Yes (Hospitalization, Other)
  Sender: FDA-Public Use
  Company Number: US-002147023-NVSC2023US008852

PATIENT
  Age: 21 Year
  Sex: Female

DRUGS (4)
  1. COSENTYX [Suspect]
     Active Substance: SECUKINUMAB
     Indication: Psoriasis
     Dosage: 300 UG, QW (Q WEEK FOR FIVE WEEKS AND THEN Q FOUR WEEKS)
     Route: 058
     Dates: start: 20221201, end: 20221229
  2. COSENTYX [Suspect]
     Active Substance: SECUKINUMAB
     Dosage: 300 UG, QMO (Q4 WEEKS)
     Route: 058
     Dates: start: 20221201
  3. COSENTYX [Suspect]
     Active Substance: SECUKINUMAB
     Dosage: UNK (AS OF DEC 29TH)
     Route: 065
  4. COSENTYX [Suspect]
     Active Substance: SECUKINUMAB
     Dosage: UNK
     Route: 065
     Dates: start: 20230302

REACTIONS (5)
  - Tonsillitis [Unknown]
  - Pharyngitis streptococcal [Unknown]
  - Psoriatic arthropathy [Unknown]
  - Arthralgia [Unknown]
  - Incorrect dose administered [Unknown]

NARRATIVE: CASE EVENT DATE: 20230112
